FAERS Safety Report 5160258-0 (Version None)
Quarter: 2006Q4

REPORT INFORMATION
  Report Type: 
  Country: None (occurrence: None)
  Receive Date: 20061129
  Receipt Date: 20061127
  Transmission Date: 20070319
  Serious: Yes (Other)
  Sender: FDA-Public Use
  Company Number: US-GLAXOSMITHKLINE-A0628722A

PATIENT
  Age: 45 Year
  Sex: Female

DRUGS (2)
  1. WELLBUTRIN XL [Suspect]
     Indication: DEPRESSION
     Dosage: 150MG TWICE PER DAY
     Route: 048
     Dates: start: 20060701
  2. RITALIN [Concomitant]

REACTIONS (10)
  - AMNESIA [None]
  - CHEST PAIN [None]
  - CRYING [None]
  - DEPRESSION [None]
  - FACIAL PAIN [None]
  - FEELING COLD [None]
  - LOSS OF CONSCIOUSNESS [None]
  - NAUSEA [None]
  - SKIN LACERATION [None]
  - VOMITING [None]
